FAERS Safety Report 8047206-0 (Version None)
Quarter: 2012Q1

REPORT INFORMATION
  Report Type: 
  Country: None (occurrence: None)
  Receive Date: 20120116
  Receipt Date: 20120105
  Transmission Date: 20120608
  Serious: No
  Sender: FDA-Public Use
  Company Number: BR-SHIRE-SPV1-2011-01539

PATIENT
  Sex: Male
  Weight: 95 kg

DRUGS (8)
  1. ATENOLOL [Concomitant]
     Indication: CARDIAC DISORDER
     Dosage: 25 MG, 2X/DAY:BID
     Route: 048
  2. CARBAMAZEPINA [Concomitant]
     Indication: PAIN
     Dosage: 200 MG, 4X/DAY:QID (EVERY 6 HOURS)
     Route: 048
  3. REPLAGAL [Suspect]
     Indication: FABRY'S DISEASE
     Dosage: 5 DF, 1X/2WKS
     Route: 041
     Dates: start: 20110801
  4. IMOSEC [Concomitant]
     Indication: FREQUENT BOWEL MOVEMENTS
  5. ACETILDOR [Concomitant]
     Indication: ANTICOAGULANT THERAPY
     Dosage: UNK, UNKNOWN
     Route: 065
  6. AMELOVAS [Concomitant]
     Indication: BLOOD PRESSURE
     Dosage: 10 MG, 2X/DAY:BID (MORNING/AFTERNOON)
     Route: 048
  7. CARDVITA [Concomitant]
     Indication: BLOOD PRESSURE
     Dosage: 50 MG, 1X/DAY:QD
  8. SINVASTATINA [Concomitant]
     Indication: BLOOD CHOLESTEROL
     Dosage: 40 MG, 2X/DAY:BID
     Route: 048

REACTIONS (1)
  - VOMITING [None]
